FAERS Safety Report 6095987-8 (Version None)
Quarter: 2009Q1

REPORT INFORMATION
  Report Type: 
  Country: None (occurrence: None)
  Receive Date: 20090227
  Receipt Date: 20080731
  Transmission Date: 20090719
  Serious: No
  Sender: FDA-Public Use
  Company Number: A0740512A

PATIENT
  Age: 40 Year
  Sex: Female

DRUGS (4)
  1. LAMICTAL [Suspect]
     Indication: BIPOLAR DISORDER
     Dosage: 50MG PER DAY
     Route: 048
     Dates: start: 20080714, end: 20080724
  2. WELLBUTRIN [Concomitant]
  3. VITAMINS [Concomitant]
  4. ALLEGRA D 24 HOUR [Concomitant]

REACTIONS (4)
  - ACNE [None]
  - FEELINGS OF WORTHLESSNESS [None]
  - MEMORY IMPAIRMENT [None]
  - WEIGHT INCREASED [None]
